FAERS Safety Report 8202351-1 (Version None)
Quarter: 2012Q1

REPORT INFORMATION
  Report Type: 
  Country: None (occurrence: None)
  Receive Date: 20120312
  Receipt Date: 20110809
  Transmission Date: 20120608
  Serious: No
  Sender: FDA-Public Use
  Company Number: US-ABBOTT-11P-163-0845118-00

PATIENT
  Sex: Female
  Weight: 49.94 kg

DRUGS (3)
  1. DEPAKOTE [Suspect]
     Indication: BIPOLAR DISORDER
     Dosage: AT BEDTIME
     Dates: start: 20100901, end: 20110501
  2. ADDERALL 5 [Concomitant]
     Indication: ATTENTION DEFICIT/HYPERACTIVITY DISORDER
  3. ABILIFY [Concomitant]
     Indication: BIPOLAR DISORDER

REACTIONS (1)
  - ALOPECIA [None]
